FAERS Safety Report 6794427-0 (Version None)
Quarter: 2010Q2

REPORT INFORMATION
  Report Type: 
  Country: None (occurrence: None)
  Receive Date: 20100625
  Receipt Date: 20100616
  Transmission Date: 20101027
  Serious: No
  Sender: FDA-Public Use
  Company Number: 2009BI013601

PATIENT
  Sex: Male

DRUGS (10)
  1. TYSABRI [Suspect]
     Indication: MULTIPLE SCLEROSIS
     Route: 042
     Dates: start: 20070101
  2. LAMICTAL [Concomitant]
     Indication: BIPOLAR I DISORDER
  3. LAMICTAL [Concomitant]
     Indication: SCHIZOPHRENIA
  4. BACLOFEN [Concomitant]
     Indication: MUSCLE SPASMS
  5. SEROQUEL [Concomitant]
     Indication: BIPOLAR I DISORDER
  6. SEROQUEL [Concomitant]
     Indication: SCHIZOPHRENIA
  7. ABILIFY [Concomitant]
     Indication: BIPOLAR I DISORDER
  8. ABILIFY [Concomitant]
     Indication: SCHIZOPHRENIA
  9. CYMBALTA [Concomitant]
     Indication: BIPOLAR I DISORDER
  10. CYMBALTA [Concomitant]
     Indication: SCHIZOPHRENIA

REACTIONS (28)
  - ATAXIA [None]
  - BALANCE DISORDER [None]
  - BIPOLAR I DISORDER [None]
  - COGNITIVE DISORDER [None]
  - CYSTITIS [None]
  - DEPRESSION [None]
  - FAECAL INCONTINENCE [None]
  - FALL [None]
  - GAIT SPASTIC [None]
  - GASTRIC INFECTION [None]
  - GASTROINTESTINAL DISORDER [None]
  - GENERAL PHYSICAL HEALTH DETERIORATION [None]
  - INFLUENZA LIKE ILLNESS [None]
  - KIDNEY INFECTION [None]
  - MONOPLEGIA [None]
  - MULTIPLE SCLEROSIS RELAPSE [None]
  - MUSCLE SPASMS [None]
  - MUSCULAR WEAKNESS [None]
  - NAIL INJURY [None]
  - PAIN IN EXTREMITY [None]
  - PARALYSIS [None]
  - PNEUMONIA [None]
  - POOR PERIPHERAL CIRCULATION [None]
  - POSTURE ABNORMAL [None]
  - SCHIZOPHRENIA [None]
  - URINARY INCONTINENCE [None]
  - URINARY TRACT DISORDER [None]
  - URINARY TRACT INFECTION [None]
